FAERS Safety Report 5318723-9 (Version None)
Quarter: 2007Q2

REPORT INFORMATION
  Report Type: 
  Country: None (occurrence: None)
  Receive Date: 20070503
  Receipt Date: 20070503
  Transmission Date: 20071010
  Serious: Yes (Hospitalization)
  Sender: FDA-Public Use
  Company Number: None

PATIENT
  Age: 49 Year
  Sex: Male
  Weight: 91 kg

DRUGS (16)
  1. ERBITUX [Suspect]
     Indication: COLON CANCER
     Dosage: 840MG X1 DOSE IV OVER 2 HOURS
     Route: 042
     Dates: start: 20070219
  2. PHENERGAN HCL [Concomitant]
  3. CAMPTOSAR [Concomitant]
  4. MULTI-VITAMIN [Concomitant]
  5. HYDROMORPHONE HCL [Concomitant]
  6. DURAGESIC-100 [Concomitant]
  7. ZYRTEC [Concomitant]
  8. ACTIQ [Concomitant]
  9. TPN [Concomitant]
  10. WARFARIN [Concomitant]
  11. IMODIUM A-D [Concomitant]
  12. PROCHLORPERAZINE [Concomitant]
  13. VICODIN [Concomitant]
  14. LORAZEPAM [Concomitant]
  15. PEPCID AC [Concomitant]
  16. AVASTIN [Concomitant]

REACTIONS (5)
  - DRY SKIN [None]
  - PAIN OF SKIN [None]
  - RASH PRURITIC [None]
  - RASH PUSTULAR [None]
  - SKIN DISORDER [None]
